FAERS Safety Report 18527466 (Version 2)
Quarter: 2020Q4

REPORT INFORMATION
  Report Type: Spontaneous
  Country: DE (occurrence: DE)
  Receive Date: 20201120
  Receipt Date: 20201124
  Transmission Date: 20210114
  Serious: Yes (Death, Life-Threatening, Hospitalization, Other)
  Sender: FDA-Public Use
  Company Number: DE-PFIZER INC-2019118987

PATIENT
  Age: 79 Year
  Sex: Female
  Weight: 71 kg

DRUGS (61)
  1. FERRO-SANOL DUODENAL [Concomitant]
     Active Substance: FERROUS GLYCINE SULFATE
     Dosage: UNK
     Route: 065
     Dates: start: 2011
  2. INFECTOTRIMET [Concomitant]
     Dosage: UNK
     Route: 065
     Dates: start: 2015
  3. HYDROMORPHONE [Concomitant]
     Active Substance: HYDROMORPHONE
     Dosage: UNK
     Dates: start: 201902
  4. ECURAL [Concomitant]
     Active Substance: MOMETASONE
     Dosage: UNK (FAT CREAM)
  5. MIDAZOLAM. [Concomitant]
     Active Substance: MIDAZOLAM
     Dosage: 5 MG/ML
     Dates: start: 201903
  6. AMLODIPINE BESILATE [Suspect]
     Active Substance: AMLODIPINE BESYLATE
     Dosage: 5 MG
     Dates: start: 2013, end: 2018
  7. VALSARTAN HEXAL [Suspect]
     Active Substance: VALSARTAN
     Indication: HYPERTENSION
     Dosage: UNK
     Route: 065
     Dates: start: 2013
  8. L-THYROX HEXAL [Suspect]
     Active Substance: LEVOTHYROXINE SODIUM
     Dosage: UNK
     Route: 048
     Dates: start: 20180524, end: 20180612
  9. DIOVAN [Suspect]
     Active Substance: VALSARTAN
     Dosage: 80 MG, 1X/DAY 1/2 X 160 MG, QD, 1X DAILY (EVENING)
     Dates: start: 20130215, end: 201310
  10. VALSARTAN 1A PHARMA [Suspect]
     Active Substance: VALSARTAN
     Indication: HYPERTENSION
     Dosage: 160 MG, 2X/DAY
     Dates: start: 200502
  11. VALSARTAN 1A PHARMA [Suspect]
     Active Substance: VALSARTAN
     Dosage: 160 MG, QD
     Route: 048
     Dates: start: 201312, end: 2017
  12. L-THYROXIN [Concomitant]
     Active Substance: LEVOTHYROXINE SODIUM
     Dosage: UNK
     Route: 065
     Dates: start: 2011, end: 2018
  13. PARACETAMOL 1 A PHARMA [Concomitant]
     Active Substance: ACETAMINOPHEN
     Dosage: UNK
     Route: 065
  14. DIGIMERCK MINOR [Concomitant]
     Active Substance: DIGITOXIN
     Dosage: 0.07 UNK
     Dates: start: 201901
  15. VALSARTAN. [Suspect]
     Active Substance: VALSARTAN
     Dosage: 160 MG, 2X/DAY
     Dates: start: 201005
  16. VALSARTAN. [Suspect]
     Active Substance: VALSARTAN
     Dosage: 160 MG, 1X/DAY
     Dates: start: 201202
  17. IBUPROFEN AL [Concomitant]
     Active Substance: IBUPROFEN
     Dosage: 400 UNK, 2X/DAY (MORNING AND EVENING)
     Route: 065
     Dates: start: 2011
  18. L-THYROX HEXAL [Suspect]
     Active Substance: LEVOTHYROXINE SODIUM
     Dosage: 125 UNK
     Route: 065
     Dates: start: 2014, end: 2016
  19. AMLODIPINE [Suspect]
     Active Substance: AMLODIPINE BESYLATE
     Indication: HYPERTENSION
     Dosage: 5 MG
     Route: 065
     Dates: start: 2016, end: 2017
  20. AMLODIPINE [Suspect]
     Active Substance: AMLODIPINE BESYLATE
     Dosage: 5 MG, 2X/DAY ONGOING AT DISCHARGE FROM REHABILITATION
     Dates: start: 20180523, end: 20180612
  21. PANTOZOL [Concomitant]
     Active Substance: PANTOPRAZOLE SODIUM
     Dosage: UNK
     Route: 065
  22. MOVICOL [Concomitant]
     Active Substance: POLYETHYLENE GLYCOL 3350\POTASSIUM CHLORIDE\SODIUM BICARBONATE\SODIUM CHLORIDE
     Dosage: UNK, 2X/DAY (BID)
     Route: 065
  23. FENTANYL CT [Concomitant]
     Dosage: 12 UG/H
     Dates: start: 201903
  24. TAVOR [SIMVASTATIN] [Concomitant]
     Active Substance: SIMVASTATIN
     Dosage: 1 UNK
     Dates: start: 201902
  25. EUTHYROX [Concomitant]
     Active Substance: LEVOTHYROXINE SODIUM
     Dosage: 125 UNK, 1X/DAY (MORNING)
  26. DIOVAN [Suspect]
     Active Substance: VALSARTAN
     Dosage: 1X80, DAILY (MORNING AND IN THE EVENING), FILM COATED TABLET
     Dates: start: 201001, end: 201303
  27. AMLODIPIN 1A PHARMA GMBH [Suspect]
     Active Substance: AMLODIPINE BESYLATE
     Indication: HYPERTENSION
     Dosage: 5 MG, UNK
     Route: 065
     Dates: start: 2013, end: 2018
  28. PARACETAMOL 1 A PHARMA [Concomitant]
     Active Substance: ACETAMINOPHEN
     Dosage: 1000 MG, SUSPENSION
     Dates: start: 201903
  29. MOMETASON GLENMARK [Concomitant]
     Dosage: UNK
     Route: 065
     Dates: start: 2018
  30. AMLODIPIN (BESILAT) DEXCEL [Concomitant]
     Active Substance: AMLODIPINE BESYLATE
     Dosage: UNK
     Route: 065
     Dates: start: 2013, end: 2017
  31. L THYROXIN HENNING [Concomitant]
     Active Substance: LEVOTHYROXINE SODIUM
     Dosage: 125 UNK, 1X/DAY
     Dates: start: 199003
  32. L THYROXIN HENNING [Concomitant]
     Active Substance: LEVOTHYROXINE SODIUM
     Dosage: 125 UNK
     Dates: start: 2016
  33. DIOVAN [Suspect]
     Active Substance: VALSARTAN
     Dosage: 160 UNK, 2X/DAY
     Dates: start: 201310
  34. VALSARTAN DURA [Suspect]
     Active Substance: VALSARTAN
     Indication: HYPERTENSION
     Dosage: 160 MG
     Route: 065
     Dates: start: 201702, end: 2018
  35. MOMETASONFUROAAT GLENMARK [Concomitant]
     Dosage: 1 MG/G
     Route: 065
     Dates: start: 2015
  36. DEXAGENT OPHTAL [DEXAMETHASONE SODIUM PHOSPHATE;GENTAMICIN SULFATE] [Concomitant]
     Dosage: UNK
     Route: 065
     Dates: start: 2014
  37. PANTOPRAZOL TAD [Concomitant]
     Active Substance: PANTOPRAZOLE SODIUM
     Indication: PRODUCT USED FOR UNKNOWN INDICATION
     Dosage: UNK
     Route: 065
     Dates: start: 2015
  38. NOVAMINSULFON [Concomitant]
     Active Substance: METAMIZOLE
     Dosage: UNK
     Route: 065
     Dates: start: 2011
  39. HCT HEXAL [Concomitant]
     Active Substance: HYDROCHLOROTHIAZIDE
     Dosage: UNK, [(12.5 MG), 1X/DAY 1/2 TABLET OF 25 MG]
     Route: 048
     Dates: start: 20180524, end: 20180524
  40. PANTOPRAZOLE [Concomitant]
     Active Substance: PANTOPRAZOLE
     Dosage: 40 MG
     Dates: start: 201901
  41. VALSARTAN. [Suspect]
     Active Substance: VALSARTAN
     Indication: HYPERTENSION
     Dosage: 160 MG, BID
     Route: 065
     Dates: start: 2005
  42. VALSARTAN. [Suspect]
     Active Substance: VALSARTAN
     Dosage: 160 MG
     Dates: start: 201702, end: 2018
  43. AMLODIPINE BESILATE [Suspect]
     Active Substance: AMLODIPINE BESYLATE
     Dosage: 5 UNK, 2X/DAY ONCE IN THE MORNING, ONCE IN THE EVENING
     Dates: start: 200803
  44. DIOVAN [Suspect]
     Active Substance: VALSARTAN
     Dosage: 160 MG, UNK
     Route: 065
     Dates: start: 2013, end: 2013
  45. EYLEA [Concomitant]
     Active Substance: AFLIBERCEPT
     Dosage: UNK
     Route: 065
     Dates: start: 2014
  46. FUROSEMIDE. [Concomitant]
     Active Substance: FUROSEMIDE
     Dosage: 40 MG, 2X/DAY
     Dates: start: 201903
  47. HALOPERIDOL NEURAXPHARM [Concomitant]
     Active Substance: HALOPERIDOL
     Dosage: 30 ML
     Dates: start: 201902
  48. BISOPROLOL-RATIOPHARM [Concomitant]
     Active Substance: BISOPROLOL
     Dosage: 1X 5 MG
     Route: 048
     Dates: start: 20180524, end: 20180612
  49. MACROGOL ABZ BALANCE [Concomitant]
     Active Substance: POLYETHYLENE GLYCOL 3350\POTASSIUM CHLORIDE\SODIUM BICARBONATE\SODIUM CHLORIDE
     Dosage: UNK
     Dates: start: 201902
  50. PANTOPRAZOL AL [Concomitant]
     Active Substance: PANTOPRAZOLE SODIUM
     Dosage: 40 UNK, 1X/DAY (MORNING), ENTERIC COATED TABLETS
  51. VALSARTAN HEXAL [Suspect]
     Active Substance: VALSARTAN
     Dosage: 160 MG, UNK
     Route: 065
     Dates: start: 2014
  52. VALSARTAN HEXAL [Suspect]
     Active Substance: VALSARTAN
     Dosage: 160 MG, 2X/DAY 1/2 A TABLET OF 320 MG, BID
     Dates: start: 20180523, end: 20180612
  53. BISOPROLOL PLUS 1 A PHARMA [Suspect]
     Active Substance: BISOPROLOL FUMARATE\HYDROCHLOROTHIAZIDE
     Dosage: 10/25
     Route: 065
     Dates: start: 2014, end: 2018
  54. L-THYROXIN ARISTO [Concomitant]
     Active Substance: LEVOTHYROXINE SODIUM
     Dosage: UNK
     Route: 065
     Dates: start: 2013
  55. BISOPROLOL COMP [Concomitant]
     Active Substance: BISOPROLOL FUMARATE\HYDROCHLOROTHIAZIDE
     Dosage: 1/2X 10/25, 1X/DAY (MORNING)
     Route: 065
     Dates: start: 2014, end: 2017
  56. PENICILLIN V AL [Concomitant]
     Dosage: UNK
     Route: 065
     Dates: start: 2015
  57. CLEXANE [Concomitant]
     Active Substance: ENOXAPARIN SODIUM
     Dosage: UNK
     Route: 065
     Dates: start: 2011
  58. BISOPROLOL PLUS 1 A PHARMA [Suspect]
     Active Substance: BISOPROLOL FUMARATE\HYDROCHLOROTHIAZIDE
     Dosage: 1/2 AN UNIT OF 10/25, QD, ONCE IN THE MORNING
     Dates: start: 200903
  59. DIOVAN [Suspect]
     Active Substance: VALSARTAN
     Indication: HYPERTENSION
     Dosage: 80 OT, UNK
     Route: 065
     Dates: start: 2011, end: 2013
  60. PREDNISOLON [PREDNISOLONE ACETATE] [Suspect]
     Active Substance: PREDNISOLONE ACETATE
     Dosage: UNK
  61. ADVANTAN [Concomitant]
     Active Substance: METHYLPREDNISOLONE ACEPONATE
     Dosage: UNK
     Route: 065
     Dates: start: 2018

REACTIONS (95)
  - Drug intolerance [Unknown]
  - Coordination abnormal [Recovering/Resolving]
  - Pain in extremity [Recovering/Resolving]
  - Atrial fibrillation [Unknown]
  - Dyspnoea [Unknown]
  - Abdominal pain [Unknown]
  - Hypokalaemia [Unknown]
  - Transient ischaemic attack [Unknown]
  - Arrhythmia [Unknown]
  - Hypothyroidism [Unknown]
  - Joint abscess [Unknown]
  - Electrocardiogram QT interval abnormal [Unknown]
  - Nephrogenic anaemia [Unknown]
  - Weight increased [Unknown]
  - Osteoporosis [Unknown]
  - Arthralgia [Recovering/Resolving]
  - Ventricular hypertrophy [Unknown]
  - Inflammatory marker increased [Unknown]
  - Cognitive disorder [Recovering/Resolving]
  - Asthenia [Unknown]
  - Basal cell carcinoma [Recovered/Resolved]
  - Visual impairment [Unknown]
  - Drug hypersensitivity [Unknown]
  - Urinary tract infection [Recovered/Resolved]
  - Weight decreased [Unknown]
  - Colon adenoma [Unknown]
  - Productive cough [Unknown]
  - Urinary incontinence [Not Recovered/Not Resolved]
  - Depression suicidal [Fatal]
  - Vomiting [Unknown]
  - General physical health deterioration [Unknown]
  - Brain oedema [Unknown]
  - Disturbance in attention [Unknown]
  - Dermatosis [Unknown]
  - Erysipelas [Recovering/Resolving]
  - Gastrointestinal oedema [Unknown]
  - Adenoma benign [Recovered/Resolved]
  - Haemorrhoids [Unknown]
  - Feeling hot [Unknown]
  - Joint swelling [Unknown]
  - Dysuria [Recovered/Resolved]
  - Pleural effusion [Recovered/Resolved]
  - Metastases to lung [Fatal]
  - Confusional state [Unknown]
  - Cataract [Unknown]
  - Fall [Unknown]
  - Fatigue [Unknown]
  - Supraventricular tachycardia [Unknown]
  - Anal prolapse [Unknown]
  - Tendon rupture [Unknown]
  - Bowel movement irregularity [Unknown]
  - Anal incontinence [Not Recovered/Not Resolved]
  - Aphthous ulcer [Unknown]
  - Metastases to central nervous system [Unknown]
  - Urinary retention [Unknown]
  - Personality change [Unknown]
  - Memory impairment [Recovering/Resolving]
  - Erythema [Unknown]
  - Bradycardia [Unknown]
  - Blood pressure inadequately controlled [Unknown]
  - Dizziness [Unknown]
  - Diabetes mellitus [Unknown]
  - Ischaemia [Unknown]
  - Diarrhoea [Unknown]
  - Meniscal degeneration [Unknown]
  - Pruritus [Unknown]
  - Fibroma [Unknown]
  - Pustule [Unknown]
  - Osteoarthritis [Unknown]
  - Iron deficiency [Unknown]
  - Renal cyst [Unknown]
  - Cerumen impaction [Unknown]
  - Rash [Unknown]
  - Clear cell renal cell carcinoma [Fatal]
  - Blood glucose increased [Unknown]
  - Brain neoplasm [Unknown]
  - Gait disturbance [Unknown]
  - Gastroenteritis [Unknown]
  - Colitis [Unknown]
  - Aortic dilatation [Unknown]
  - Ventricular extrasystoles [Unknown]
  - Peripheral swelling [Unknown]
  - Anaemia [Unknown]
  - Nocturia [Unknown]
  - Skin induration [Unknown]
  - Restlessness [Unknown]
  - Chronic kidney disease [Unknown]
  - Functional gastrointestinal disorder [Unknown]
  - Aphasia [Recovering/Resolving]
  - Varicose vein [Unknown]
  - Cardiac failure [Unknown]
  - Large intestine polyp [Unknown]
  - Tinnitus [Unknown]
  - Melanocytic naevus [Unknown]
  - Insomnia [Unknown]

NARRATIVE: CASE EVENT DATE: 2007
